FAERS Safety Report 22519027 (Version 3)
Quarter: 2023Q2

REPORT INFORMATION
  Report Type: Spontaneous
  Country: JP (occurrence: JP)
  Receive Date: 20230605
  Receipt Date: 20230626
  Transmission Date: 20230721
  Serious: Yes (Other)
  Sender: FDA-Public Use
  Company Number: JP-KYOWAKIRIN-2023AKK005771

PATIENT
  Age: 58 Year
  Sex: Male

DRUGS (20)
  1. DARBEPOETIN ALFA [Suspect]
     Active Substance: DARBEPOETIN ALFA
     Indication: Product used for unknown indication
     Dosage: 90 MICROGRAM, QWK
     Route: 010
     Dates: start: 201911, end: 202208
  2. DARBEPOETIN ALFA [Suspect]
     Active Substance: DARBEPOETIN ALFA
     Dosage: 30 MICROGRAM, QWK
     Route: 010
     Dates: start: 202208, end: 2022
  3. DARBEPOETIN ALFA [Suspect]
     Active Substance: DARBEPOETIN ALFA
     Dosage: 60 MICROGRAM, QWK
     Route: 010
     Dates: start: 2022, end: 202210
  4. DARBEPOETIN ALFA [Suspect]
     Active Substance: DARBEPOETIN ALFA
     Dosage: 90 MICROGRAM, QWK
     Route: 010
     Dates: start: 202210, end: 202302
  5. DARBEPOETIN ALFA [Suspect]
     Active Substance: DARBEPOETIN ALFA
     Dosage: 120 MICROGRAM, QWK
     Route: 010
     Dates: start: 202302, end: 202304
  6. DARBEPOETIN ALFA [Suspect]
     Active Substance: DARBEPOETIN ALFA
     Dosage: 180 MICROGRAM, QWK
     Route: 010
     Dates: start: 202304
  7. ROCALTROL [Concomitant]
     Active Substance: CALCITRIOL
     Indication: Hyperparathyroidism secondary
     Dosage: 0.5 UG, 3X/WEEK, 1.5 MICROGRAMS/WEEK FOR 4 YEAR AND 10 MONTHS
     Route: 042
     Dates: start: 20180711
  8. TOPIROXOSTAT [Concomitant]
     Active Substance: TOPIROXOSTAT
     Indication: Hyperuricaemia
     Dosage: 1 DF, QD, AFTER BREAKFAST, TOTAL DOSE REPORTED WAS THE TOTAL AMOUNT OF A DRUG GIVEN FROM INITIATION
     Route: 048
     Dates: start: 20170929
  9. LANSOPRAZOLE [Concomitant]
     Active Substance: LANSOPRAZOLE
     Indication: Chronic gastritis
     Dosage: 1 DF, QD, AFTER BREAKFAST, LANSOPRAZOLE OD TABLETS 15MG ^TOWA^ WAS SWITCHED FROM LAFUTIDINE TABLETS
     Route: 048
     Dates: start: 20220124
  10. LANSOPRAZOLE [Concomitant]
     Active Substance: LANSOPRAZOLE
     Indication: Gastrooesophageal reflux disease
  11. CLARITHROMYCIN [Concomitant]
     Active Substance: CLARITHROMYCIN
     Indication: Bronchitis chronic
     Dosage: 1 DOSAGE FORM, QD, AFTER BREAKFAST X 14 DAYS
     Route: 048
  12. TELMISARTAN [Concomitant]
     Active Substance: TELMISARTAN
     Indication: Blood pressure increased
     Dosage: 1 DF, QD, AFTER BREAKFAST, TOTAL DOSE REPORTED WAS THE TOTAL AMOUNT OF A DRUG GIVEN FROM INITIATION
     Route: 048
     Dates: start: 20190426
  13. EZETIMIBE [Concomitant]
     Active Substance: EZETIMIBE
     Indication: Lipids increased
     Dosage: 1 DF, QD, AFTER BREAKFAST, TOTAL DOSE REPORTED WAS THE TOTAL AMOUNT OF A DRUG GIVEN FROM INITIATION
     Route: 048
     Dates: start: 20220225
  14. EVOCALCET [Concomitant]
     Active Substance: EVOCALCET
     Indication: Product used for unknown indication
     Dosage: 1 DF, QD, AFTER EVENING MEAL, , ORKEDIA TABLETS 1 MG WAS SWITCHED FROM REGPARA 25 MG
     Route: 048
     Dates: start: 20180622
  15. CALCIUM CARBONATE [Concomitant]
     Active Substance: CALCIUM CARBONATE
     Indication: Hyperphosphataemia
     Dosage: 2 DF, TID, IMMEDIATELY BEFORE BREAKFAST, LUNCH, AND EVENING MEAL
     Route: 048
  16. FERRIC CITRATE ANHYDROUS [Concomitant]
     Active Substance: FERRIC CITRATE ANHYDROUS
     Indication: Hyperphosphataemia
     Dosage: 2 DF, TID, IMMEDIATELY BEFORE BREAKFAST, LUNCH, AND EVENING MEAL, PRECIPITATED CALCIUM CARBONATE TAB
     Route: 048
     Dates: start: 20190621
  17. LANTHANUM CARBONATE [Concomitant]
     Active Substance: LANTHANUM CARBONATE
     Indication: Hyperphosphataemia
     Dosage: 2 DF, QID, IMMEDIATELY BEFORE BREAKFAST, LUNCH, EVENING MEAL, AND SNACK, TOTAL DOSE REPORTED WAS THE
     Route: 048
     Dates: start: 20170906
  18. LAFUTIDINE [Concomitant]
     Active Substance: LAFUTIDINE
     Indication: Chronic gastritis
     Dosage: UNK
     Route: 065
     Dates: end: 20220124
  19. LAFUTIDINE [Concomitant]
     Active Substance: LAFUTIDINE
     Indication: Gastrooesophageal reflux disease
  20. Fesin [Concomitant]
     Indication: Iron deficiency anaemia
     Dosage: 40 MILLIGRAM, QWK
     Route: 042
     Dates: start: 20230213, end: 20230417

REACTIONS (1)
  - Aplasia pure red cell [Not Recovered/Not Resolved]

NARRATIVE: CASE EVENT DATE: 20221101
